FAERS Safety Report 12393713 (Version 1)
Quarter: 2016Q2

REPORT INFORMATION
  Report Type: Spontaneous
  Country: US (occurrence: None)
  Receive Date: 20160520
  Receipt Date: 20160520
  Transmission Date: 20160815
  Serious: Yes (Hospitalization)
  Sender: FDA-Public Use
  Company Number: None

PATIENT
  Age: 60 Year
  Sex: Male
  Weight: 72.5 kg

DRUGS (2)
  1. ABIRATERONE 1000 MG [Suspect]
     Active Substance: ABIRATERONE
     Indication: PROSTATE CANCER
     Route: 048
     Dates: start: 20150505, end: 20160503
  2. DASATINIB 100 MG [Suspect]
     Active Substance: DASATINIB
     Indication: PROSTATE CANCER
     Route: 048
     Dates: start: 20150505

REACTIONS (1)
  - Hypertension [None]

NARRATIVE: CASE EVENT DATE: 20160518
